FAERS Safety Report 9958876 (Version 1)
Quarter: 2014Q1

REPORT INFORMATION
  Report Type: Report from Study
  Country: US (occurrence: US)
  Receive Date: 20140305
  Receipt Date: 20140305
  Transmission Date: 20141002
  Serious: No
  Sender: FDA-Public Use
  Company Number: US-ABBVIE-13P-163-1103359-00

PATIENT
  Age: 63 Year
  Sex: Male

DRUGS (10)
  1. HUMIRA [Suspect]
     Indication: CROHN^S DISEASE
     Dosage: LOADING DOSE
     Dates: start: 20130514, end: 20130514
  2. HUMIRA [Suspect]
     Dosage: LOADING DOSE
     Dates: start: 20130528, end: 20130528
  3. HUMIRA [Suspect]
  4. AMBIEN [Concomitant]
     Indication: INSOMNIA
     Dosage: DAILY, AT NIGHT
  5. UNKNOWN MEDICATION [Concomitant]
     Indication: CROHN^S DISEASE
     Dosage: DAILY
  6. NOVOLOG [Concomitant]
     Indication: DIABETES MELLITUS
     Dosage: DAILY, IF NEEDED
  7. GLIPIZIDE [Concomitant]
     Indication: DIABETES MELLITUS
     Dosage: DAILY
  8. ZOCOR [Concomitant]
     Indication: BLOOD CHOLESTEROL INCREASED
     Dosage: DAILY
  9. UNKNOWN BLUE PILL [Concomitant]
     Indication: PROSTATIC DISORDER
  10. FLOMAX [Concomitant]
     Indication: URINE FLOW DECREASED
     Dosage: DAILY

REACTIONS (1)
  - Injection site pain [Recovered/Resolved]
